FAERS Safety Report 5915471-9 (Version None)
Quarter: 2008Q4

REPORT INFORMATION
  Report Type: 
  Country: None (occurrence: None)
  Receive Date: 20081010
  Receipt Date: 20081001
  Transmission Date: 20090506
  Serious: Yes (Other)
  Sender: FDA-Public Use
  Company Number: US-PFIZER INC-2007017622

PATIENT
  Sex: Female

DRUGS (1)
  1. NORVASC [Suspect]
     Route: 048

REACTIONS (3)
  - DEMENTIA [None]
  - HALLUCINATION [None]
  - MEDICATION ERROR [None]
